FAERS Safety Report 13705693 (Version 3)
Quarter: 2017Q4

REPORT INFORMATION
  Report Type: Report from Study
  Country: BR (occurrence: BR)
  Receive Date: 20170630
  Receipt Date: 20171025
  Transmission Date: 20180320
  Serious: Yes (Other)
  Sender: FDA-Public Use
  Company Number: ALCN2017BR004115

PATIENT
  Sex: Female
  Weight: 72 kg

DRUGS (2)
  1. VITALUX PLUS [Suspect]
     Active Substance: VITAMINS
     Indication: MACULAR DEGENERATION
     Dosage: 1 DF, QD
     Route: 048
  2. VITALUX PLUS OMEGA 03 (ALC) [Suspect]
     Active Substance: MINERALS\OMEGA-3 FATTY ACIDS\VITAMINS
     Indication: MACULAR DEGENERATION
     Dosage: QD
     Route: 048

REACTIONS (5)
  - Wrong technique in product usage process [Unknown]
  - Product use complaint [Unknown]
  - Dementia Alzheimer^s type [Not Recovered/Not Resolved]
  - Mobility decreased [Not Recovered/Not Resolved]
  - Dysphagia [Unknown]
